FAERS Safety Report 10272401 (Version 1)
Quarter: 2014Q3

REPORT INFORMATION
  Report Type: Spontaneous
  Country: FR (occurrence: FR)
  Receive Date: 20140702
  Receipt Date: 20140702
  Transmission Date: 20150326
  Serious: Yes (Other)
  Sender: FDA-Public Use
  Company Number: FR-ROCHE-1427114

PATIENT
  Age: 29 Year
  Sex: Female

DRUGS (23)
  1. CERTICAN [Suspect]
     Active Substance: EVEROLIMUS
     Indication: PROPHYLAXIS AGAINST GRAFT VERSUS HOST DISEASE
     Dosage: 1MG DAILY UNTIL 07-MAY-2014 THEN 1.5MG DAILY
     Route: 048
     Dates: start: 20140105
  2. CERTICAN [Suspect]
     Active Substance: EVEROLIMUS
     Route: 065
     Dates: start: 20130731
  3. CERTICAN [Suspect]
     Active Substance: EVEROLIMUS
     Dosage: IN THE MORNING AND IN THE EVENING (LAST ASSAY OF CERTICAN AROUND 5, LOWER LIMIT).
     Route: 065
  4. CORTANCYL [Suspect]
     Active Substance: PREDNISONE
     Indication: PROPHYLAXIS AGAINST GRAFT VERSUS HOST DISEASE
     Dosage: ONGOING TREATMENT
     Route: 048
     Dates: start: 20140105
  5. DIFFU K [Concomitant]
     Active Substance: POTASSIUM CHLORIDE
  6. ORACILLINE [Concomitant]
     Active Substance: PENICILLIN V
  7. ISOPTIN [Concomitant]
     Active Substance: VERAPAMIL HYDROCHLORIDE
  8. ATARAX [Concomitant]
     Active Substance: HYDROXYZINE\HYDROXYZINE HYDROCHLORIDE
  9. NOVONORM [Concomitant]
     Active Substance: REPAGLINIDE
  10. ROVALCYTE [Concomitant]
     Active Substance: VALGANCICLOVIR HYDROCHLORIDE
     Route: 065
  11. VFEND [Concomitant]
     Active Substance: VORICONAZOLE
  12. URBANYL [Concomitant]
     Active Substance: CLOBAZAM
  13. SPASFON (FRANCE) [Concomitant]
     Active Substance: PHLOROGLUCINOL
  14. DAFALGAN [Concomitant]
     Active Substance: ACETAMINOPHEN
  15. LEVEMIR [Concomitant]
     Active Substance: INSULIN DETEMIR
  16. CELLCEPT [Suspect]
     Active Substance: MYCOPHENOLATE MOFETIL\MYCOPHENOLATE MOFETIL HYDROCHLORIDE
     Route: 065
     Dates: start: 20130715, end: 20130731
  17. DUROGESIC [Concomitant]
     Active Substance: FENTANYL
  18. EUPRESSYL [Concomitant]
     Active Substance: URAPIDIL
  19. INEXIUM [Concomitant]
     Active Substance: ESOMEPRAZOLE
  20. KEPPRA [Concomitant]
     Active Substance: LEVETIRACETAM
  21. CELLCEPT [Suspect]
     Active Substance: MYCOPHENOLATE MOFETIL\MYCOPHENOLATE MOFETIL HYDROCHLORIDE
     Indication: PROPHYLAXIS AGAINST GRAFT VERSUS HOST DISEASE
     Route: 048
     Dates: start: 20140105, end: 20140507
  22. LIPANTHYL [Concomitant]
     Active Substance: FENOFIBRATE
     Route: 065
     Dates: start: 201402
  23. OXYNORM [Concomitant]
     Active Substance: OXYCODONE HYDROCHLORIDE

REACTIONS (2)
  - Hypertriglyceridaemia [Not Recovered/Not Resolved]
  - Hypercholesterolaemia [Not Recovered/Not Resolved]

NARRATIVE: CASE EVENT DATE: 20140414
